FAERS Safety Report 4388053-0 (Version None)
Quarter: 2004Q2

REPORT INFORMATION
  Report Type: 
  Country: None (occurrence: None)
  Receive Date: 20040607
  Receipt Date: 20030814
  Transmission Date: 20050107
  Serious: Yes (Other)
  Sender: FDA-Public Use
  Company Number: 330662

PATIENT

DRUGS (3)
  1. ACCUTANE [Suspect]
     Indication: ACNE
     Dosage: ORAL
     Route: 048
     Dates: start: 20021015, end: 20021215
  2. NA [Suspect]
     Dosage: NA
  3. DIFFERIN GEL (ADAPALENE) [Concomitant]

REACTIONS (2)
  - NO ADVERSE DRUG EFFECT [None]
  - PREGNANCY [None]
